FAERS Safety Report 12269861 (Version 1)
Quarter: 2016Q2

REPORT INFORMATION
  Report Type: Spontaneous
  Country: BR (occurrence: BR)
  Receive Date: 20160415
  Receipt Date: 20160415
  Transmission Date: 20160815
  Serious: Yes (Other)
  Sender: FDA-Public Use
  Company Number: BR-AMGEN-BRASP2016047396

PATIENT
  Age: 44 Year
  Sex: Male
  Weight: 49 kg

DRUGS (4)
  1. FLEXALGIN [Concomitant]
     Indication: ARTHRALGIA
     Dosage: UNK
     Dates: start: 2001
  2. ENBREL [Suspect]
     Active Substance: ETANERCEPT
     Indication: ANKYLOSING SPONDYLITIS
     Dosage: 50 MG, 1X/WEEK
     Route: 065
     Dates: start: 20151230
  3. CAPTOPRIL. [Concomitant]
     Active Substance: CAPTOPRIL
     Indication: HYPERTENSION
     Dosage: UNK
     Dates: start: 2014
  4. SULFAMETHAZINE [Concomitant]
     Active Substance: SULFAMETHAZINE
     Indication: ANKYLOSING SPONDYLITIS
     Dosage: UNK
     Dates: start: 201512

REACTIONS (2)
  - Abasia [Unknown]
  - Pain [Unknown]
